FAERS Safety Report 7750912-6 (Version None)
Quarter: 2011Q3

REPORT INFORMATION
  Report Type: 
  Country: None (occurrence: None)
  Receive Date: 20110912
  Receipt Date: 20110823
  Transmission Date: 20111222
  Serious: No
  Sender: FDA-Public Use
  Company Number: ADR-UNK-033

PATIENT
  Age: 259 Day

DRUGS (4)
  1. LAMIVUDINE/ZIDOVUDINE [Suspect]
     Indication: ACQUIRED IMMUNODEFICIENCY SYNDROME
     Dosage: 1 COURSE/DAY
  2. ISENTRESS [Concomitant]
  3. FUZEON [Suspect]
  4. ZIDOVUDINE [Concomitant]

REACTIONS (2)
  - MATERNAL DRUGS AFFECTING FOETUS [None]
  - PLAGIOCEPHALY [None]
